FAERS Safety Report 4855035-1 (Version None)
Quarter: 2005Q4

REPORT INFORMATION
  Report Type: 
  Country: None (occurrence: None)
  Receive Date: 20051214
  Receipt Date: 20051201
  Transmission Date: 20060501
  Serious: Yes (Other)
  Sender: FDA-Public Use
  Company Number: 2005161951

PATIENT
  Age: 20 Year
  Sex: Male

DRUGS (3)
  1. GENOTROPIN [Suspect]
     Indication: GROWTH HORMONE DEFICIENCY
  2. CISPLATIN [Concomitant]
  3. ETOPOSIDE [Concomitant]

REACTIONS (8)
  - ABDOMINAL PAIN LOWER [None]
  - ALPHA 1 FOETOPROTEIN INCREASED [None]
  - BLOOD LACTATE DEHYDROGENASE INCREASED [None]
  - HYDRONEPHROSIS [None]
  - METASTASES TO LYMPH NODES [None]
  - PNEUMOTHORAX [None]
  - TESTICULAR EMBRYONAL CARCINOMA STAGE II [None]
  - TESTICULAR YOLK SAC TUMOUR STAGE II [None]
